FAERS Safety Report 9577777 (Version 1)
Quarter: 2013Q4

REPORT INFORMATION
  Report Type: Spontaneous
  Country: US (occurrence: US)
  Receive Date: 20131001
  Receipt Date: 20131001
  Transmission Date: 20140711
  Serious: No
  Sender: FDA-Public Use
  Company Number: US-AMGEN-USASP2013009720

PATIENT
  Sex: Female
  Weight: 58.5 kg

DRUGS (6)
  1. ENBREL [Suspect]
     Indication: RHEUMATOID ARTHRITIS
     Dosage: 50 MG, QWK
     Route: 058
  2. MULTIVITAMINS, PLAIN [Concomitant]
     Dosage: UNK
  3. SULFASALAZIN [Concomitant]
     Dosage: 500 MG, UNK
  4. FISH OIL [Concomitant]
     Dosage: 1000 MG, UNK
  5. CALCIUM D                          /00944201/ [Concomitant]
     Dosage: 1000 UNK, UNK
  6. BABY ASPIRIN [Concomitant]
     Dosage: 81 MG, UNK

REACTIONS (1)
  - Musculoskeletal pain [Unknown]
